FAERS Safety Report 6920789-7 (Version None)
Quarter: 2010Q3

REPORT INFORMATION
  Report Type: 
  Country: None (occurrence: None)
  Receive Date: 20100812
  Receipt Date: 20100803
  Transmission Date: 20110219
  Serious: Yes (Hospitalization)
  Sender: FDA-Public Use
  Company Number: AU-ASTRAZENECA-2010SE36226

PATIENT
  Age: 25 Year
  Sex: Male

DRUGS (2)
  1. SEROQUEL [Suspect]
     Indication: SCHIZOPHRENIA
     Dosage: HIGH DOSE
     Route: 048
  2. SEROQUEL [Suspect]
     Indication: ATTENTION DEFICIT/HYPERACTIVITY DISORDER
     Dosage: HIGH DOSE
     Route: 048

REACTIONS (2)
  - DIASTOLIC DYSFUNCTION [None]
  - EJECTION FRACTION DECREASED [None]
